FAERS Safety Report 17162794 (Version 1)
Quarter: 2019Q4

REPORT INFORMATION
  Report Type: Spontaneous
  Country: US (occurrence: US)
  Receive Date: 20191217
  Receipt Date: 20191217
  Transmission Date: 20200122
  Serious: No
  Sender: FDA-Public Use
  Company Number: NVSC2019US022853

PATIENT
  Age: 14 Year
  Sex: Female

DRUGS (3)
  1. LEVOCETIRIZINE [Suspect]
     Active Substance: LEVOCETIRIZINE
     Indication: RHINITIS ALLERGIC
     Route: 065
  2. FLUTICASONE. [Suspect]
     Active Substance: FLUTICASONE
     Indication: RHINITIS ALLERGIC
     Route: 065
  3. MONTELUKAST [Suspect]
     Active Substance: MONTELUKAST SODIUM
     Indication: RHINITIS ALLERGIC
     Route: 065

REACTIONS (1)
  - Drug ineffective [Unknown]
